FAERS Safety Report 8617903-4 (Version None)
Quarter: 2012Q3

REPORT INFORMATION
  Report Type: 
  Country: None (occurrence: None)
  Receive Date: 20120824
  Receipt Date: 20120320
  Transmission Date: 20120928
  Serious: No
  Sender: FDA-Public Use
  Company Number: US-ASTRAZENECA-2012SE19253

PATIENT
  Age: 634 Month
  Sex: Female
  Weight: 62.1 kg

DRUGS (9)
  1. VITAMIN D [Concomitant]
     Indication: MEDICAL DIET
  2. SEROQUEL [Suspect]
     Indication: BIPOLAR DISORDER
     Route: 048
     Dates: start: 20110701, end: 20120301
  3. FASOMAX [Concomitant]
     Dosage: 70 MG, GENERIC FORM
  4. PRAVASTATIN [Concomitant]
     Indication: BLOOD CHOLESTEROL INCREASED
  5. SYMBICORT [Suspect]
     Indication: CHRONIC OBSTRUCTIVE PULMONARY DISEASE
     Dosage: 160/4.5 MCG TWO TIMES A DAY
     Route: 055
  6. VITAMIN B1 TAB [Concomitant]
     Indication: MEDICAL DIET
  7. CELEXA [Concomitant]
     Indication: DEPRESSION
  8. VENTOLIN HFA [Concomitant]
     Indication: CHRONIC OBSTRUCTIVE PULMONARY DISEASE
     Dosage: THREE TIMES A DAY
  9. SEROQUEL [Suspect]
     Route: 048
     Dates: start: 20120301

REACTIONS (4)
  - APHONIA [None]
  - INTENTIONAL DRUG MISUSE [None]
  - DIABETES MELLITUS [None]
  - AMNESIA [None]
